FAERS Safety Report 6302846-1 (Version None)
Quarter: 2009Q3

REPORT INFORMATION
  Report Type: 
  Country: None (occurrence: None)
  Receive Date: 20090810
  Receipt Date: 20090430
  Transmission Date: 20100115
  Serious: No
  Sender: FDA-Public Use
  Company Number: US-TYCO HEALTHCARE/MALLINCKRODT-T200900962

PATIENT
  Sex: Male

DRUGS (3)
  1. MORPHINE [Suspect]
     Indication: PAIN
     Dosage: 60 MG, UNK
     Route: 048
     Dates: start: 20090415
  2. DIOVAN                             /01319601/ [Concomitant]
     Indication: BLOOD PRESSURE
     Dosage: 160 MG, UNK
  3. SOMA [Concomitant]
     Indication: MUSCLE RELAXANT THERAPY
     Dosage: 350 MG, UNK

REACTIONS (2)
  - DRUG INEFFECTIVE [None]
  - WITHDRAWAL SYNDROME [None]
